FAERS Safety Report 6956181-9 (Version None)
Quarter: 2010Q3

REPORT INFORMATION
  Report Type: 
  Country: None (occurrence: None)
  Receive Date: 20100830
  Receipt Date: 20100819
  Transmission Date: 20110219
  Serious: Yes (Hospitalization, Other)
  Sender: FDA-Public Use
  Company Number: PHHY2010BR13189

PATIENT
  Age: 79 Year
  Sex: Male
  Weight: 75 kg

DRUGS (9)
  1. EXELON [Suspect]
     Indication: PARKINSON'S DISEASE
     Dosage: 4.6 MG, QD
     Route: 062
     Dates: start: 20100220
  2. EXELON [Suspect]
     Dosage: 9 MG/5CM2 PER DAY
     Route: 062
  3. PROLOPA [Concomitant]
     Indication: PARKINSON'S DISEASE
     Dosage: 1 DF, QID (200/50 MG)
     Route: 048
  4. PROLOPA [Concomitant]
     Dosage: 2 DF, QD (100,25 MG)
     Route: 048
  5. HYDREA [Concomitant]
     Indication: MYELOPROLIFERATIVE DISORDER
     Dosage: 10 DAYS ON, 14 DAYS OFF
  6. ZYLORIC ^FRESENIUS^ [Concomitant]
     Dosage: 1 DF, QD
     Route: 048
  7. SLOW-K [Concomitant]
     Dosage: 1 DF, QD
     Route: 048
  8. FLUDROCORTISONE ACETATE [Concomitant]
     Dosage: 1 DF, QD
     Route: 048
  9. PRAMIPEXOLE DIHYDROCHLORIDE [Concomitant]

REACTIONS (9)
  - ABDOMINAL DISTENSION [None]
  - CHILLS [None]
  - DIARRHOEA [None]
  - DYSPHAGIA [None]
  - OBESITY SURGERY [None]
  - PNEUMONIA ASPIRATION [None]
  - PYREXIA [None]
  - VOMITING [None]
  - WHITE BLOOD CELL COUNT INCREASED [None]
